FAERS Safety Report 5430847-4 (Version None)
Quarter: 2007Q3

REPORT INFORMATION
  Report Type: 
  Country: None (occurrence: None)
  Receive Date: 20070830
  Receipt Date: 20061214
  Transmission Date: 20080115
  Serious: No
  Sender: FDA-Public Use
  Company Number: A0631603A

PATIENT
  Age: 76 Year
  Sex: Female

DRUGS (2)
  1. WELLBUTRIN XL [Suspect]
     Indication: DEPRESSION
     Dosage: 150MG PER DAY
     Route: 048
  2. HORMONE REPLACEMENT THERAPY [Concomitant]

REACTIONS (2)
  - FALL [None]
  - SLEEP DISORDER [None]
